FAERS Safety Report 6465639-0 (Version None)
Quarter: 2009Q4

REPORT INFORMATION
  Report Type: 
  Country: None (occurrence: None)
  Receive Date: 20091124
  Receipt Date: 20091109
  Transmission Date: 20100525
  Serious: Yes (Other)
  Sender: FDA-Public Use
  Company Number: 8054638

PATIENT
  Age: 69 Year
  Sex: Female

DRUGS (5)
  1. PREDNISOLONE [Suspect]
     Indication: LICHEN SCLEROSUS
     Dosage: 10 MG /D
     Dates: start: 19930101, end: 19990101
  2. 8-METHOXYPSORALEN [Suspect]
     Indication: LICHEN SCLEROSUS
     Dosage: TOP
     Route: 061
     Dates: start: 19960101
  3. CYCLOSPORINE [Suspect]
     Indication: LICHEN SCLEROSUS
     Dosage: 175 MG /D
     Dates: start: 19980101
  4. METHYLPREDNISOLONE [Suspect]
     Indication: LICHEN SCLEROSUS
     Dates: start: 19980101
  5. MYCOPHENOLATE MOFETIL [Suspect]
     Indication: LICHEN SCLEROSUS
     Dates: start: 20000101, end: 20010101

REACTIONS (5)
  - IMMUNOSUPPRESSION [None]
  - RADIATION INJURY [None]
  - SKIN GRAFT [None]
  - SQUAMOUS CELL CARCINOMA OF SKIN [None]
  - THERAPEUTIC RESPONSE DECREASED [None]
